FAERS Safety Report 6530336-X (Version None)
Quarter: 2010Q1

REPORT INFORMATION
  Report Type: 
  Country: None (occurrence: None)
  Receive Date: 20100107
  Receipt Date: 20091228
  Transmission Date: 20100710
  Serious: Yes (Hospitalization)
  Sender: FDA-Public Use
  Company Number: FR-BAXTER-2009BH020027

PATIENT
  Age: 41 Year
  Sex: Male

DRUGS (19)
  1. ENDOXAN BAXTER [Suspect]
     Indication: ACUTE LYMPHOCYTIC LEUKAEMIA
     Route: 042
     Dates: start: 20091103, end: 20091103
  2. ENDOXAN BAXTER [Suspect]
     Route: 042
     Dates: start: 20091019, end: 20091019
  3. METHOTREXATE GENERIC [Suspect]
     Indication: ACUTE LYMPHOCYTIC LEUKAEMIA
     Route: 037
     Dates: start: 20091015, end: 20091015
  4. KIDROLASE [Suspect]
     Indication: ACUTE LYMPHOCYTIC LEUKAEMIA
     Route: 042
     Dates: start: 20091115, end: 20091115
  5. KIDROLASE [Suspect]
     Route: 042
     Dates: start: 20091111, end: 20091111
  6. KIDROLASE [Suspect]
     Route: 042
     Dates: start: 20091109, end: 20091109
  7. KIDROLASE [Suspect]
     Route: 042
     Dates: start: 20091107, end: 20091107
  8. KIDROLASE [Suspect]
     Route: 042
     Dates: start: 20091030, end: 20091030
  9. KIDROLASE [Suspect]
     Route: 042
     Dates: start: 20091028, end: 20091028
  10. KIDROLASE [Suspect]
     Route: 042
     Dates: start: 20091026, end: 20091026
  11. ONCOVIN [Suspect]
     Indication: ACUTE LYMPHOCYTIC LEUKAEMIA
     Route: 042
     Dates: start: 20091109, end: 20091109
  12. ONCOVIN [Suspect]
     Route: 042
     Dates: start: 20091103, end: 20091103
  13. ONCOVIN [Suspect]
     Route: 042
     Dates: start: 20091027, end: 20091027
  14. ONCOVIN [Suspect]
     Route: 042
     Dates: start: 20091019, end: 20091019
  15. CERUBIDIN [Suspect]
     Indication: ACUTE LYMPHOCYTIC LEUKAEMIA
     Route: 042
     Dates: start: 20091113, end: 20091114
  16. CERUBIDIN [Suspect]
     Route: 042
     Dates: start: 20091019, end: 20091021
  17. CORTANCYL [Suspect]
     Indication: ACUTE LYMPHOCYTIC LEUKAEMIA
     Route: 065
     Dates: start: 20091103, end: 20091103
  18. CORTANCYL [Suspect]
     Route: 065
     Dates: start: 20091019, end: 20091019
  19. CORTANCYL [Suspect]
     Route: 065
     Dates: start: 20091012, end: 20091012

REACTIONS (3)
  - HEPATOTOXICITY [None]
  - REVERSIBLE ISCHAEMIC NEUROLOGICAL DEFICIT [None]
  - TOXIC SKIN ERUPTION [None]
